FAERS Safety Report 16687747 (Version 2)
Quarter: 2019Q4

REPORT INFORMATION
  Report Type: Spontaneous
  Country: US (occurrence: US)
  Receive Date: 20190809
  Receipt Date: 20191016
  Transmission Date: 20200122
  Serious: No
  Sender: FDA-Public Use
  Company Number: US-PFIZER INC-2019341452

PATIENT
  Age: 63 Year
  Sex: Male
  Weight: 83.45 kg

DRUGS (1)
  1. VIAGRA [Suspect]
     Active Substance: SILDENAFIL CITRATE
     Indication: ERECTILE DYSFUNCTION
     Dosage: 30 MG, AS NEEDED

REACTIONS (2)
  - Fall [Recovered/Resolved]
  - Blood glucose decreased [Recovered/Resolved]
